FAERS Safety Report 9526727 (Version 1)
Quarter: 2013Q3

REPORT INFORMATION
  Report Type: Spontaneous
  Country: US (occurrence: US)
  Receive Date: 20130916
  Receipt Date: 20130916
  Transmission Date: 20140515
  Serious: Yes (Hospitalization, Other)
  Sender: FDA-Public Use
  Company Number: PHHY2013US099343

PATIENT
  Age: 50 Year
  Sex: Female

DRUGS (3)
  1. LAMOTRIGINE [Suspect]
  2. CYCLOBENZAPRINE [Interacting]
     Indication: ANALGESIC THERAPY
     Dosage: 10 MG, TID
  3. ESCITALOPRAM [Concomitant]
     Indication: MAJOR DEPRESSION

REACTIONS (17)
  - Drug reaction with eosinophilia and systemic symptoms [Recovering/Resolving]
  - Viral infection [Recovering/Resolving]
  - Skin reaction [Recovering/Resolving]
  - Rash erythematous [Recovering/Resolving]
  - Rash papular [Recovering/Resolving]
  - Myalgia [Recovering/Resolving]
  - Malaise [Recovering/Resolving]
  - Influenza like illness [Recovering/Resolving]
  - Rash pruritic [Recovering/Resolving]
  - Rash [Recovering/Resolving]
  - Papule [Recovering/Resolving]
  - Pyrexia [Recovering/Resolving]
  - Oral disorder [Recovering/Resolving]
  - Leukocytosis [Recovering/Resolving]
  - Blister [Recovering/Resolving]
  - Tongue eruption [Recovering/Resolving]
  - Drug interaction [Unknown]
